FAERS Safety Report 23109693 (Version 4)
Quarter: 2024Q1

REPORT INFORMATION
  Report Type: Report from Study
  Country: US (occurrence: US)
  Receive Date: 20231026
  Receipt Date: 20240201
  Transmission Date: 20240410
  Serious: Yes (Other)
  Sender: FDA-Public Use
  Company Number: US-002147023-NVSC2023US227610

PATIENT
  Sex: Female

DRUGS (3)
  1. KESIMPTA [Suspect]
     Active Substance: OFATUMUMAB
     Indication: Relapsing multiple sclerosis
     Dosage: 20 MG, QW
     Route: 058
     Dates: start: 20230906
  2. KESIMPTA [Suspect]
     Active Substance: OFATUMUMAB
     Dosage: QMO
     Route: 058
  3. SOLU-MEDROL [Suspect]
     Active Substance: METHYLPREDNISOLONE SODIUM SUCCINATE
     Indication: Dyskinesia
     Dosage: UNK
     Route: 042

REACTIONS (12)
  - Intervertebral disc protrusion [Unknown]
  - Dyskinesia [Recovering/Resolving]
  - Electric shock sensation [Unknown]
  - Fatigue [Unknown]
  - Dizziness [Recovered/Resolved]
  - Hypoaesthesia [Unknown]
  - Paraesthesia [Recovering/Resolving]
  - Symptom recurrence [Unknown]
  - Flushing [Unknown]
  - Gait disturbance [Unknown]
  - Dysarthria [Unknown]
  - Photophobia [Unknown]
